FAERS Safety Report 5884366-1 (Version None)
Quarter: 2008Q3

REPORT INFORMATION
  Report Type: 
  Country: None (occurrence: None)
  Receive Date: 20080915
  Receipt Date: 20080903
  Transmission Date: 20090109
  Serious: Yes (Other)
  Sender: FDA-Public Use
  Company Number: ES-PFIZER INC-2008062887

PATIENT
  Age: 78 Year
  Sex: Female

DRUGS (3)
  1. ALDACTONE [Suspect]
     Indication: LYMPHOEDEMA
     Route: 048
     Dates: start: 20070103, end: 20080703
  2. SEGURIL [Concomitant]
     Indication: LYMPHOEDEMA
  3. FUROSEMIDE [Concomitant]
     Dates: start: 20061103

REACTIONS (1)
  - THROMBOCYTOPENIA [None]
